FAERS Safety Report 6132361-X (Version None)
Quarter: 2009Q1

REPORT INFORMATION
  Report Type: 
  Country: None (occurrence: None)
  Receive Date: 20090325
  Receipt Date: 20090316
  Transmission Date: 20090719
  Serious: Yes (Other)
  Sender: FDA-Public Use
  Company Number: FR-GILEAD-2009-0021015

PATIENT
  Sex: Male

DRUGS (1)
  1. TRUVADA [Suspect]
     Indication: DRUG USE FOR UNKNOWN INDICATION

REACTIONS (5)
  - ARTHRALGIA [None]
  - BLOOD PHOSPHORUS DECREASED [None]
  - CREATININE RENAL CLEARANCE DECREASED [None]
  - FANCONI SYNDROME ACQUIRED [None]
  - VITAMIN D DECREASED [None]
